FAERS Safety Report 8917325 (Version 1)
Quarter: 2012Q4

REPORT INFORMATION
  Report Type: 
  Country: CO (occurrence: CO)
  Receive Date: 20121120
  Receipt Date: 20121120
  Transmission Date: 20130627
  Serious: Yes (Hospitalization, Other)
  Sender: FDA-Public Use
  Company Number: CO-VERTEX PHARMACEUTICAL INC.-2012-024922

PATIENT
  Sex: Female

DRUGS (3)
  1. INCIVO [Suspect]
     Indication: HEPATITIS C
     Dosage: Dosage Form: Tablet
     Route: 048
  2. RIBAVIRIN [Suspect]
     Indication: PRODUCT USED FOR UNKNOWN INDICATION
     Dosage: Dosage Form: Unspecified
     Route: 065
  3. PEGINTERFERON ALFA [Concomitant]
     Indication: PRODUCT USED FOR UNKNOWN INDICATION
     Dosage: Dosage Form: Unknown
     Route: 065

REACTIONS (4)
  - Gastrointestinal haemorrhage [Recovered/Resolved]
  - Neutropenia [Recovered/Resolved]
  - Thrombocytopenia [Recovered/Resolved]
  - Anaemia [Unknown]
